FAERS Safety Report 10043759 (Version 1)
Quarter: 2014Q1

REPORT INFORMATION
  Report Type: Spontaneous
  Country: CA (occurrence: CA)
  Receive Date: 20140328
  Receipt Date: 20140328
  Transmission Date: 20141002
  Serious: Yes (Hospitalization)
  Sender: FDA-Public Use
  Company Number: CA-ASTRAZENECA-2014SE19596

PATIENT
  Age: 45 Year
  Sex: Female

DRUGS (6)
  1. SYMBICORT TURBUHALER [Suspect]
     Indication: ASTHMA
     Route: 055
     Dates: start: 20140212
  2. CALCIUM CARBONATE [Concomitant]
     Indication: HYPOCALCAEMIA
  3. VITAMIN D [Concomitant]
     Indication: HYPOCALCAEMIA
  4. CALCITRIOL [Concomitant]
     Indication: HYPOCALCAEMIA
  5. MIRENA [Concomitant]
     Dates: start: 20140212
  6. AMOXICILLIN [Concomitant]
     Dates: start: 20140212

REACTIONS (1)
  - Hypercalcaemia [Not Recovered/Not Resolved]
